FAERS Safety Report 15827233 (Version 1)
Quarter: 2019Q1

REPORT INFORMATION
  Report Type: Spontaneous
  Country: GB (occurrence: GB)
  Receive Date: 20190115
  Receipt Date: 20190115
  Transmission Date: 20190417
  Serious: Yes (Hospitalization)
  Sender: FDA-Public Use
  Company Number: GB-BAYER-2019-010118

PATIENT
  Age: 80 Year
  Sex: Male
  Weight: 98.87 kg

DRUGS (1)
  1. CLARITYN 10 MG [Suspect]
     Active Substance: LORATADINE
     Indication: SEASONAL ALLERGY
     Dosage: 10 MG, OM
     Route: 048
     Dates: start: 2015, end: 201806

REACTIONS (4)
  - Dyspnoea [Recovering/Resolving]
  - Asthenia [Recovering/Resolving]
  - Palpitations [Recovered/Resolved with Sequelae]
  - Tachycardia [Recovering/Resolving]
